FAERS Safety Report 5260959-X (Version None)
Quarter: 2007Q1

REPORT INFORMATION
  Report Type: 
  Country: None (occurrence: None)
  Receive Date: 20070309
  Receipt Date: 20070227
  Transmission Date: 20070707
  Serious: Yes (Hospitalization)
  Sender: FDA-Public Use
  Company Number: FR-BRISTOL-MYERS SQUIBB COMPANY-13705355

PATIENT
  Age: 60 Year
  Sex: Female

DRUGS (6)
  1. ENDOXAN [Suspect]
     Indication: BREAST CANCER
     Route: 042
     Dates: start: 20070208, end: 20070208
  2. ZOPHREN [Concomitant]
     Route: 048
     Dates: start: 20070208, end: 20070208
  3. TAXOTERE [Concomitant]
     Route: 042
     Dates: start: 20070208, end: 20070208
  4. DOMPERIDONE [Concomitant]
     Dates: start: 20070209, end: 20070209
  5. EMEND [Concomitant]
     Route: 048
     Dates: start: 20070208, end: 20070208
  6. PRIMPERAN INJ [Concomitant]
     Route: 042
     Dates: start: 20070209, end: 20070209

REACTIONS (3)
  - HYPONATRAEMIA [None]
  - PYREXIA [None]
  - SOMNOLENCE [None]
